FAERS Safety Report 5877455-9 (Version None)
Quarter: 2008Q3

REPORT INFORMATION
  Report Type: 
  Country: None (occurrence: None)
  Receive Date: 20080909
  Receipt Date: 20080826
  Transmission Date: 20090109
  Serious: Yes (Death)
  Sender: FDA-Public Use
  Company Number: 2008SP001943

PATIENT
  Sex: Female

DRUGS (1)
  1. XOPENEX [Suspect]
     Dosage: 0.63 MG/3ML; Q6H; INHALATION
     Route: 055

REACTIONS (1)
  - DEATH [None]
